FAERS Safety Report 5499165-2 (Version None)
Quarter: 2007Q4

REPORT INFORMATION
  Report Type: 
  Country: None (occurrence: None)
  Receive Date: 20071026
  Receipt Date: 20071012
  Transmission Date: 20080405
  Serious: Yes (Disabling)
  Sender: FDA-Public Use
  Company Number: JP-BRISTOL-MYERS SQUIBB COMPANY-13946603

PATIENT
  Age: 30 Year
  Sex: Male

DRUGS (2)
  1. BREVIBLOC [Suspect]
     Dates: start: 20040401, end: 20040401
  2. SEVOFLURANE [Suspect]
     Dates: start: 20040401, end: 20040401

REACTIONS (3)
  - BRADYCARDIA [None]
  - HYPOXIC ENCEPHALOPATHY [None]
  - SHOCK [None]
